FAERS Safety Report 26057308 (Version 1)
Quarter: 2025Q4

REPORT INFORMATION
  Report Type: Spontaneous
  Country: US (occurrence: US)
  Receive Date: 20251118
  Receipt Date: 20251118
  Transmission Date: 20260117
  Serious: No
  Sender: AMNEAL
  Company Number: US-AMNEAL PHARMACEUTICALS-2025-AMRX-03081

PATIENT
  Age: 47 Year

DRUGS (2)
  1. ISOTRETINOIN [Suspect]
     Active Substance: ISOTRETINOIN
     Indication: Rash
     Dosage: 30 MILLIGRAM
     Route: 065
     Dates: end: 20230714
  2. ISOTRETINOIN [Suspect]
     Active Substance: ISOTRETINOIN
     Dosage: 1 CAPSULES, 1 /WEEK
     Route: 065

REACTIONS (4)
  - Symptom recurrence [Unknown]
  - Expired product administered [Unknown]
  - Drug effect less than expected [Unknown]
  - Treatment noncompliance [Unknown]

NARRATIVE: CASE EVENT DATE: 20250107
